FAERS Safety Report 4611930-X (Version None)
Quarter: 2005Q2

REPORT INFORMATION
  Report Type: 
  Country: None (occurrence: None)
  Receive Date: 20050308
  Receipt Date: 20041207
  Transmission Date: 20051028
  Serious: Yes (Other)
  Sender: FDA-Public Use
  Company Number: 2004UW25681

PATIENT
  Age: 58 Year
  Sex: Male

DRUGS (4)
  1. CRESTOR [Suspect]
     Dosage: 10 MG QD PO
     Route: 048
     Dates: end: 20041023
  2. PLAVIX [Concomitant]
  3. NORVASC [Concomitant]
  4. BETA BLOCKER [Concomitant]

REACTIONS (5)
  - CHEST PAIN [None]
  - CONSTIPATION [None]
  - DYSURIA [None]
  - HYPERTENSION [None]
  - PAIN [None]
